FAERS Safety Report 8580812 (Version 3)
Quarter: 2013Q2

REPORT INFORMATION
  Report Type: Report from Study
  Country: FR (occurrence: FR)
  Receive Date: 20120525
  Receipt Date: 20130518
  Transmission Date: 20140414
  Serious: Yes (Hospitalization)
  Sender: FDA-Public Use
  Company Number: FR-ROCHE-1071058

PATIENT
  Age: 59 Year
  Sex: Male

DRUGS (15)
  1. RITUXIMAB [Suspect]
     Indication: CENTRAL NERVOUS SYSTEM LYMPHOMA
     Dosage: LAST DOSE PRIOR TO SAE: 19/APR/2012
     Route: 042
     Dates: start: 20120210, end: 20120328
  2. METHOTREXATE [Suspect]
     Indication: CENTRAL NERVOUS SYSTEM LYMPHOMA
     Route: 042
     Dates: start: 20120210, end: 20120418
  3. ETOPOSIDE [Suspect]
     Indication: CENTRAL NERVOUS SYSTEM LYMPHOMA
     Route: 042
     Dates: start: 20120211, end: 20120329
  4. CARMUSTINE [Suspect]
     Indication: CENTRAL NERVOUS SYSTEM LYMPHOMA
     Route: 042
     Dates: start: 20120213, end: 20120330
  5. PREDNISONE [Suspect]
     Indication: CENTRAL NERVOUS SYSTEM LYMPHOMA
     Route: 048
     Dates: start: 20120210, end: 20120425
  6. FLAGYL [Concomitant]
     Route: 065
  7. SOLUPRED (FRANCE) [Concomitant]
  8. INEXIUM [Concomitant]
  9. PARACETAMOL [Concomitant]
  10. MOTILIUM (FRANCE) [Concomitant]
     Route: 065
  11. SMECTA (FRANCE) [Concomitant]
     Dosage: 2 SACHETS
     Route: 065
  12. DIFFU K [Concomitant]
     Dosage: 2 TABLETS
     Route: 065
  13. LOVENOX [Concomitant]
     Dosage: 1 INJECTION
     Route: 065
  14. NOVOMIX 30 [Concomitant]
     Route: 065
  15. NOVOMIX 30 [Concomitant]
     Route: 065

REACTIONS (2)
  - Rectal haemorrhage [Recovered/Resolved]
  - Enterocolitis infectious [Unknown]
